FAERS Safety Report 6370610-3 (Version None)
Quarter: 2009Q3

REPORT INFORMATION
  Report Type: 
  Country: None (occurrence: None)
  Receive Date: 20090923
  Receipt Date: 20090917
  Transmission Date: 20100115
  Serious: Yes (Death, Other)
  Sender: FDA-Public Use
  Company Number: TR-ELI_LILLY_AND_COMPANY-TR200909003936

PATIENT
  Sex: Female

DRUGS (3)
  1. HUMULIN R [Suspect]
     Indication: GESTATIONAL DIABETES
     Dosage: 2 IU, 4/D
     Route: 064
     Dates: start: 20090611, end: 20090613
  2. FERRUM [Concomitant]
     Indication: MINERAL SUPPLEMENTATION
     Route: 064
     Dates: start: 20090101, end: 20090613
  3. VITAMINS [Concomitant]

REACTIONS (5)
  - DRUG EXPOSURE DURING PREGNANCY [None]
  - IMMATURE RESPIRATORY SYSTEM [None]
  - MATERNAL DRUGS AFFECTING FOETUS [None]
  - PREMATURE BABY [None]
  - SEPSIS [None]
